FAERS Safety Report 5118504-5 (Version None)
Quarter: 2006Q3

REPORT INFORMATION
  Report Type: 
  Country: None (occurrence: None)
  Receive Date: 20060927
  Receipt Date: 20060919
  Transmission Date: 20061208
  Serious: Yes (Hospitalization, Other)
  Sender: FDA-Public Use
  Company Number: 2006033218

PATIENT
  Sex: Male
  Weight: 2.56 kg

DRUGS (5)
  1. CYTOTEC [Suspect]
     Indication: ABORTION INDUCED
     Dosage: 400 MCG (400 MCG, 1 IN 1 D), ORAL
     Route: 048
     Dates: start: 20060212, end: 20060218
  2. ZYMAFLUOR (SODIUM FLUORIDE) [Suspect]
     Dosage: ORAL
     Route: 048
     Dates: start: 20060601
  3. UVEDOSE (COLECALCIFEROL) [Suspect]
     Dosage: 1 INTAKE, ORAL
     Route: 048
     Dates: start: 20060601, end: 20060601
  4. RHOPHYLAC SRK (ANTI-D IMMUNOGLOBULIN) [Suspect]
     Indication: RHESUS INCOMPATIBILITY
     Dosage: 1 INJECTION (200 MCG), INTRAVENOUS
     Route: 042
     Dates: start: 20060213, end: 20060213
  5. RHOPHYLAC SRK (ANTI-D IMMUNOGLOBULIN) [Suspect]
     Indication: RHESUS INCOMPATIBILITY
     Dosage: 1 INJECTION (300 MCG), INTRAMUSCULAR
     Route: 030
     Dates: start: 20060713, end: 20060713

REACTIONS (8)
  - APGAR SCORE LOW [None]
  - CAESAREAN SECTION [None]
  - DRUG EXPOSURE DURING PREGNANCY [None]
  - FOETAL DISORDER [None]
  - MATERNAL CONDITION AFFECTING FOETUS [None]
  - NEONATAL INFECTION [None]
  - PLACENTA PRAEVIA [None]
  - PREMATURE BABY [None]
